FAERS Safety Report 9885089 (Version 1)
Quarter: 2014Q1

REPORT INFORMATION
  Report Type: Spontaneous
  Country: US (occurrence: US)
  Receive Date: 20140210
  Receipt Date: 20140210
  Transmission Date: 20141002
  Serious: Yes (Other)
  Sender: FDA-Public Use
  Company Number: US-JNJFOC-20140118059

PATIENT
  Sex: Female

DRUGS (4)
  1. STELARA [Suspect]
     Indication: PSORIATIC ARTHROPATHY
     Route: 058
     Dates: start: 20131126
  2. STELARA [Suspect]
     Indication: PSORIATIC ARTHROPATHY
     Route: 058
     Dates: start: 201312
  3. CYCLOSPORINE [Concomitant]
     Indication: PUSTULAR PSORIASIS
     Route: 065
  4. CYCLOSPORINE [Concomitant]
     Indication: PUSTULAR PSORIASIS
     Route: 065

REACTIONS (9)
  - Renal failure [Unknown]
  - Diabetes mellitus [Unknown]
  - Hypertension [Unknown]
  - Pustular psoriasis [Unknown]
  - Nasopharyngitis [Unknown]
  - Blood magnesium decreased [Unknown]
  - Pyrexia [Unknown]
  - Asthenia [Unknown]
  - Feeling abnormal [Unknown]
